FAERS Safety Report 8907954 (Version 1)
Quarter: 2012Q4

REPORT INFORMATION
  Report Type: 
  Country: US (occurrence: US)
  Receive Date: 20121114
  Receipt Date: 20121114
  Transmission Date: 20130627
  Serious: Yes (Other)
  Sender: FDA-Public Use
  Company Number: CHPA2012US023629

PATIENT
  Age: 55 Year
  Sex: Female

DRUGS (3)
  1. EXCEDRIN EXTRA STRENGTH [Suspect]
     Indication: PAIN
     Dosage: 3 or 4 DF, A DAY
     Route: 048
     Dates: start: 2005
  2. EXCEDRIN EXTRA STRENGTH [Suspect]
     Dosage: 2 or 3, A DAY
     Route: 048
     Dates: start: 2000, end: 2005
  3. TETANUS VACCINE [Concomitant]
     Dosage: Unk, Unk
     Dates: start: 201204

REACTIONS (10)
  - Intervertebral disc protrusion [Not Recovered/Not Resolved]
  - Spinal disorder [Not Recovered/Not Resolved]
  - Intervertebral disc degeneration [Not Recovered/Not Resolved]
  - Head injury [Recovered/Resolved]
  - Snake bite [Recovered/Resolved]
  - Fall [Recovered/Resolved]
  - Energy increased [Recovered/Resolved]
  - Pain [Not Recovered/Not Resolved]
  - Wrong technique in drug usage process [Unknown]
  - Incorrect dose administered [Unknown]
